FAERS Safety Report 12598048 (Version 1)
Quarter: 2016Q3

REPORT INFORMATION
  Report Type: Spontaneous
  Country: CA (occurrence: US)
  Receive Date: 20160726
  Receipt Date: 20160726
  Transmission Date: 20161109
  Serious: Yes (Hospitalization)
  Sender: FDA-Public Use
  Company Number: CA-HLSUS-2016-US-000242

PATIENT
  Sex: Male

DRUGS (1)
  1. CLOZARIL [Suspect]
     Active Substance: CLOZAPINE

REACTIONS (5)
  - Renal failure [Recovered/Resolved]
  - Respiratory failure [Recovered/Resolved]
  - Cardiac failure [Not Recovered/Not Resolved]
  - Intestinal obstruction [Recovered/Resolved]
  - Sepsis [Recovered/Resolved]
